FAERS Safety Report 9072199 (Version 1)
Quarter: 2013Q1

REPORT INFORMATION
  Report Type: Report from Study
  Country: US (occurrence: US)
  Receive Date: 20130129
  Receipt Date: 20130129
  Transmission Date: 20140127
  Serious: No
  Sender: FDA-Public Use
  Company Number: US-ABBOTT-12P-163-0929612-00

PATIENT
  Sex: Female
  Weight: 93.98 kg

DRUGS (9)
  1. HUMIRA 40 MG/0.8 ML PEN [Suspect]
     Indication: HIDRADENITIS
     Dates: start: 201202
  2. UNKNOWN ANTI HYPERGLYCEMIC AGENT [Concomitant]
     Indication: PRODUCT USED FOR UNKNOWN INDICATION
  3. HUMULIN [Concomitant]
     Indication: DIABETES MELLITUS
  4. DOXYCYCLINE [Concomitant]
     Indication: HIDRADENITIS
  5. CLINDIMYCIN [Concomitant]
     Indication: HIDRADENITIS
     Route: 061
  6. ACZONE [Concomitant]
     Indication: HIDRADENITIS
     Route: 061
  7. BENZOYL PEROXIDE [Concomitant]
     Indication: HIDRADENITIS
     Route: 061
  8. UNKNOWN STEROID PILL [Concomitant]
     Indication: PRURITUS
  9. HIBICLENS [Concomitant]
     Indication: HIDRADENITIS

REACTIONS (3)
  - Injection site pain [Not Recovered/Not Resolved]
  - Off label use [Not Recovered/Not Resolved]
  - Hypertension [Not Recovered/Not Resolved]
